FAERS Safety Report 18257843 (Version 3)
Quarter: 2020Q4

REPORT INFORMATION
  Report Type: Spontaneous
  Country: US (occurrence: US)
  Receive Date: 20200911
  Receipt Date: 20201008
  Transmission Date: 20210113
  Serious: No
  Sender: FDA-Public Use
  Company Number: US-PFIZER INC-2020348405

PATIENT
  Age: 69 Year
  Sex: Female

DRUGS (9)
  1. XELJANZ XR [Suspect]
     Active Substance: TOFACITINIB CITRATE
     Indication: RHEUMATOID ARTHRITIS
     Dosage: UNK
     Dates: end: 20200905
  2. OXYBUTYNIN. [Concomitant]
     Active Substance: OXYBUTYNIN CHLORIDE
     Dosage: UNK
  3. PREDNISONE. [Concomitant]
     Active Substance: PREDNISONE
     Indication: PAIN
     Dosage: UNK
  4. FLUOXETINE [Concomitant]
     Active Substance: FLUOXETINE HYDROCHLORIDE
     Indication: PAIN
     Dosage: UNK
  5. OMEPRAZOLE. [Concomitant]
     Active Substance: OMEPRAZOLE
     Indication: GASTRIC DISORDER
     Dosage: UNK
  6. TRAZODONE [Concomitant]
     Active Substance: TRAZODONE HYDROCHLORIDE
     Dosage: UNK
  7. FOLIC ACID. [Concomitant]
     Active Substance: FOLIC ACID
     Indication: PAIN
     Dosage: UNK
  8. XELJANZ XR [Suspect]
     Active Substance: TOFACITINIB CITRATE
     Indication: SYSTEMIC LUPUS ERYTHEMATOSUS
  9. CYCLOBENZAPRINE. [Concomitant]
     Active Substance: CYCLOBENZAPRINE
     Dosage: UNK

REACTIONS (1)
  - Hypoacusis [Unknown]
